FAERS Safety Report 6933384 (Version 8)
Quarter: 2013Q3

REPORT INFORMATION
  Report Type: Spontaneous
  Country: CA (occurrence: CA)
  Receive Date: 20090310
  Receipt Date: 20130826
  Transmission Date: 20140515
  Serious: Yes (Death, Life-Threatening, Hospitalization, Other)
  Sender: FDA-Public Use
  Company Number: CA-GILEAD-2009-0020646

PATIENT
  Age: 47 Year
  Sex: Female

DRUGS (2)
  1. ATRIPLA [Suspect]
     Indication: HIV INFECTION
     Dosage: 1 DF, UNK
     Route: 048
     Dates: start: 20080912, end: 20090202
  2. CEFTIN [Concomitant]
     Indication: SINUSITIS
     Dosage: UNK
     Dates: start: 20081203, end: 20081209

REACTIONS (3)
  - Drug level increased [Unknown]
  - Acute hepatic failure [Fatal]
  - Hypovolaemia [Unknown]
